FAERS Safety Report 15643099 (Version 1)
Quarter: 2018Q4

REPORT INFORMATION
  Report Type: Spontaneous
  Country: US (occurrence: US)
  Receive Date: 20181114
  Receipt Date: 20181114
  Transmission Date: 20190205
  Serious: No
  Sender: FDA-Public Use
  Company Number: None

PATIENT
  Age: 79 Year
  Sex: Male
  Weight: 99.79 kg

DRUGS (1)
  1. STELARA [Suspect]
     Active Substance: USTEKINUMAB
     Indication: PSORIASIS
     Dosage: INJECT 45MG SUBCUTANEOUSLY ON DAY 0 AND DAY 28 AS DIRECTED
     Route: 058
     Dates: start: 20181023

REACTIONS (2)
  - Blood pressure measurement [None]
  - Dizziness [None]
